FAERS Safety Report 5966551-3 (Version None)
Quarter: 2008Q4

REPORT INFORMATION
  Report Type: 
  Country: None (occurrence: None)
  Receive Date: 20081125
  Receipt Date: 20081118
  Transmission Date: 20090506
  Serious: Yes (Other)
  Sender: FDA-Public Use
  Company Number: CA-WYE-H06878908

PATIENT
  Age: 20 Year
  Sex: Female

DRUGS (6)
  1. RECOMBINANT HUMAN INTERLEUKIN-11 (RHIL-11) [Suspect]
     Indication: THROMBOCYTOPENIA
     Route: 058
  2. DAPSONE [Concomitant]
  3. AMITRIPTYLINE HCL [Concomitant]
  4. NEUPOGEN [Concomitant]
  5. MORPHINE [Interacting]
     Route: 048
  6. PHENOBARBITAL TAB [Concomitant]

REACTIONS (9)
  - ANALGESIA [None]
  - BLOOD CREATINE INCREASED [None]
  - BLOOD UREA INCREASED [None]
  - DEPRESSED LEVEL OF CONSCIOUSNESS [None]
  - DRUG INTERACTION [None]
  - OEDEMA PERIPHERAL [None]
  - PULMONARY OEDEMA [None]
  - RESPIRATORY DEPRESSION [None]
  - SOMNOLENCE [None]
